FAERS Safety Report 7412877-6 (Version None)
Quarter: 2011Q2

REPORT INFORMATION
  Report Type: 
  Country: None (occurrence: None)
  Receive Date: 20110413
  Receipt Date: 20110408
  Transmission Date: 20111010
  Serious: Yes (Other)
  Sender: FDA-Public Use
  Company Number: D0070954A

PATIENT
  Age: 74 Year
  Sex: Male

DRUGS (2)
  1. DUODART [Suspect]
     Route: 048
  2. XALATAN [Concomitant]
     Route: 031

REACTIONS (1)
  - GLAUCOMA [None]
